FAERS Safety Report 13245962 (Version 1)
Quarter: 2017Q1

REPORT INFORMATION
  Report Type: Spontaneous
  Country: CA (occurrence: CA)
  Receive Date: 20170217
  Receipt Date: 20170217
  Transmission Date: 20170428
  Serious: Yes (Hospitalization, Other)
  Sender: FDA-Public Use
  Company Number: CA-TEVA-739205ACC

PATIENT
  Age: 58 Year
  Sex: Male
  Weight: 87.17 kg

DRUGS (11)
  1. MYCOPHENOLATE MOFETIL. [Suspect]
     Active Substance: MYCOPHENOLATE MOFETIL
     Indication: HEART TRANSPLANT
     Dosage: 2000 MILLIGRAM DAILY;
     Route: 048
  2. LIPITOR [Concomitant]
     Active Substance: ATORVASTATIN CALCIUM
  3. PREDNISONE. [Concomitant]
     Active Substance: PREDNISONE
  4. VITAMIN D [Concomitant]
     Active Substance: CHOLECALCIFEROL
  5. SULFAMETHOXAZOLE\TRIMETHOPRIM [Concomitant]
     Active Substance: SULFAMETHOXAZOLE\TRIMETHOPRIM
  6. ASA [Concomitant]
     Active Substance: ASPIRIN
  7. CALCIUM [Concomitant]
     Active Substance: CALCIUM
  8. MAGNESIUM OXIDE. [Concomitant]
     Active Substance: MAGNESIUM OXIDE
  9. PANTOLOC [Concomitant]
     Active Substance: PANTOPRAZOLE SODIUM
  10. NORVASC [Concomitant]
     Active Substance: AMLODIPINE BESYLATE
  11. PROGRAF [Concomitant]
     Active Substance: TACROLIMUS\TACROLIMUS ANHYDROUS

REACTIONS (3)
  - Dehydration [Recovered/Resolved]
  - Diarrhoea [Recovered/Resolved]
  - Renal impairment [Recovered/Resolved]
